FAERS Safety Report 25080409 (Version 2)
Quarter: 2025Q2

REPORT INFORMATION
  Report Type: Report from Study
  Country: US (occurrence: US)
  Receive Date: 20250315
  Receipt Date: 20250601
  Transmission Date: 20250717
  Serious: Yes (Hospitalization)
  Sender: ABBVIE
  Company Number: US-ABBVIE-6174856

PATIENT
  Sex: Female

DRUGS (2)
  1. CREON [Suspect]
     Active Substance: PANCRELIPASE AMYLASE\PANCRELIPASE LIPASE\PANCRELIPASE PROTEASE
     Indication: Product used for unknown indication
     Route: 048
     Dates: start: 20220715
  2. CREON [Suspect]
     Active Substance: PANCRELIPASE AMYLASE\PANCRELIPASE LIPASE\PANCRELIPASE PROTEASE
     Indication: Product used for unknown indication
     Route: 048
     Dates: start: 2021

REACTIONS (5)
  - Lymphoedema [Unknown]
  - Dyspepsia [Unknown]
  - Fall [Unknown]
  - Balance disorder [Unknown]
  - Diarrhoea [Not Recovered/Not Resolved]
